FAERS Safety Report 12693348 (Version 7)
Quarter: 2020Q4

REPORT INFORMATION
  Report Type: Spontaneous
  Country: US (occurrence: US)
  Receive Date: 20160829
  Receipt Date: 20201120
  Transmission Date: 20210113
  Serious: Yes (Life-Threatening, Other)
  Sender: FDA-Public Use
  Company Number: US-PFIZER INC-2016401694

PATIENT
  Age: 70 Year
  Sex: Female
  Weight: 48 kg

DRUGS (4)
  1. DEPO-MEDROL [Suspect]
     Active Substance: METHYLPREDNISOLONE ACETATE
     Dosage: 125 MG, SINGLE
     Route: 030
  2. DEPO-MEDROL [Suspect]
     Active Substance: METHYLPREDNISOLONE ACETATE
     Indication: PNEUMONIA
     Dosage: UNK
     Route: 042
     Dates: start: 2011
  3. DEPO-MEDROL [Suspect]
     Active Substance: METHYLPREDNISOLONE ACETATE
     Dosage: UNK, SINGLE
     Route: 042
     Dates: start: 2014, end: 2014
  4. KLOR-CON [Concomitant]
     Active Substance: POTASSIUM CHLORIDE
     Dosage: 10 MEQ, 2X/DAY
     Route: 048
     Dates: start: 201402, end: 201403

REACTIONS (22)
  - Loss of consciousness [Unknown]
  - Barotrauma [Not Recovered/Not Resolved]
  - Dysphagia [Unknown]
  - Nightmare [Unknown]
  - Fat tissue increased [Not Recovered/Not Resolved]
  - Hair growth abnormal [Unknown]
  - Dyspnoea [Unknown]
  - Malaise [Not Recovered/Not Resolved]
  - Off label use [Recovered/Resolved]
  - Fluid retention [Recovered/Resolved]
  - Skin disorder [Unknown]
  - Hypersensitivity [Recovered/Resolved with Sequelae]
  - Muscle disorder [Unknown]
  - Injury [Unknown]
  - Gait inability [Not Recovered/Not Resolved]
  - Shock [Unknown]
  - Product use issue [Recovered/Resolved]
  - Aphasia [Recovering/Resolving]
  - Vertigo [Not Recovered/Not Resolved]
  - Weight increased [Recovered/Resolved]
  - Burning sensation [Not Recovered/Not Resolved]
  - Hypoacusis [Unknown]

NARRATIVE: CASE EVENT DATE: 2011
